FAERS Safety Report 9413559 (Version 2)
Quarter: 2013Q3

REPORT INFORMATION
  Report Type: Spontaneous
  Country: IE (occurrence: None)
  Receive Date: 20130703
  Receipt Date: 20130722
  Transmission Date: 20140515
  Serious: Yes (Other)
  Sender: FDA-Public Use
  Company Number: 222163

PATIENT
  Age: 36 Year
  Sex: Female
  Weight: 56.9 kg

DRUGS (1)
  1. INNOHEP (TINZAPARIN SODIUM) [Suspect]
     Indication: DEEP VEIN THROMBOSIS
     Route: 058
     Dates: start: 20130603, end: 20130621

REACTIONS (3)
  - Pulmonary embolism [None]
  - Fatigue [None]
  - Maternal exposure during pregnancy [None]
